FAERS Safety Report 4821845-X (Version None)
Quarter: 2005Q4

REPORT INFORMATION
  Report Type: 
  Country: None (occurrence: None)
  Receive Date: 20051107
  Receipt Date: 20041104
  Transmission Date: 20060501
  Serious: Yes (Death, Hospitalization)
  Sender: FDA-Public Use
  Company Number: 2004UW22813

PATIENT
  Age: 63 Year
  Sex: Female

DRUGS (2)
  1. XYLOCAINE [Suspect]
     Dates: start: 20041022
  2. KENALOG [Suspect]
     Dates: start: 20041022

REACTIONS (3)
  - MULTI-ORGAN FAILURE [None]
  - NECROTISING FASCIITIS [None]
  - STAPHYLOCOCCAL SEPSIS [None]
